FAERS Safety Report 7875384-2 (Version None)
Quarter: 2011Q4

REPORT INFORMATION
  Report Type: 
  Country: None (occurrence: None)
  Receive Date: 20111031
  Receipt Date: 20111020
  Transmission Date: 20120403
  Serious: Yes (Other)
  Sender: FDA-Public Use
  Company Number: GB-GLAXOSMITHKLINE-B0757878A

PATIENT
  Age: 51 Year
  Sex: Female

DRUGS (5)
  1. FLUTICASONE PROPIONATE/SALMETEROL [Suspect]
     Indication: ASTHMA
     Dosage: 100MCG PER DAY
     Route: 065
  2. ALBUTEROL SULFATE AUTOHALER [Suspect]
     Indication: ASTHMA
     Dosage: 800MCG PER DAY
     Route: 065
  3. SINGULAIR [Suspect]
     Indication: ASTHMA
     Route: 065
  4. THEOPHYLLINE [Suspect]
     Indication: ILL-DEFINED DISORDER
     Route: 065
  5. PREDNISOLONE [Suspect]
     Indication: ASTHMA
     Route: 065

REACTIONS (1)
  - ASTHMA [None]
